FAERS Safety Report 9666799 (Version 1)
Quarter: 2013Q4

REPORT INFORMATION
  Report Type: Report from Study
  Country: US (occurrence: US)
  Receive Date: 20131104
  Receipt Date: 20131104
  Transmission Date: 20140711
  Serious: Yes (Hospitalization)
  Sender: FDA-Public Use
  Company Number: US-SHIRE-ALL1-2013-07503

PATIENT
  Age: 29 Year
  Sex: Male

DRUGS (3)
  1. IDURSULFASE [Suspect]
     Indication: MUCOPOLYSACCHARIDOSIS II
     Dosage: UNK UNK, UNKNOWN
     Route: 041
     Dates: start: 20100204
  2. MODAFINIL [Concomitant]
     Indication: SOMNOLENCE
     Dosage: 5 MG, 1X/DAY:QD
     Route: 048
     Dates: start: 20110324
  3. POTASSIUM CHLORIDE [Concomitant]
     Indication: BLOOD POTASSIUM ABNORMAL
     Dosage: 20 MEQ, 1X/DAY:QD
     Route: 048
     Dates: start: 20100603

REACTIONS (2)
  - Incisional drainage [Unknown]
  - Haemoglobin decreased [Unknown]
